FAERS Safety Report 17644846 (Version 2)
Quarter: 2020Q2

REPORT INFORMATION
  Report Type: Report from Study
  Country: DE (occurrence: DE)
  Receive Date: 20200408
  Receipt Date: 20200506
  Transmission Date: 20200713
  Serious: Yes (Death, Life-Threatening, Hospitalization, Other)
  Sender: FDA-Public Use
  Company Number: PHHY2019DE064675

PATIENT
  Age: 74 Year
  Sex: Male
  Weight: 89 kg

DRUGS (87)
  1. RIXATHON [Suspect]
     Active Substance: RITUXIMAB
     Indication: DIFFUSE LARGE B-CELL LYMPHOMA
     Dosage: 776.25 MG, (START TIME: 15:30 TO STOP TIME: 19:30)
     Route: 041
     Dates: start: 20190211, end: 20190211
  2. DOXORUBICIN [Suspect]
     Active Substance: DOXORUBICIN
     Dosage: 77.20 MG, UNK
     Route: 041
     Dates: start: 20190425, end: 20190425
  3. MIRTAZAPIN [Concomitant]
     Active Substance: MIRTAZAPINE
     Indication: PROPHYLAXIS
     Dosage: 7.5 MG, UNK
     Route: 048
     Dates: start: 20190201
  4. PANTOZOL [Concomitant]
     Active Substance: PANTOPRAZOLE SODIUM
     Indication: PROPHYLAXIS
     Dosage: 40 MG, UNK
     Route: 048
     Dates: start: 20180101
  5. RANITIDIN [Concomitant]
     Active Substance: RANITIDINE HYDROCHLORIDE
     Dosage: UNK
     Route: 042
     Dates: start: 20190424, end: 20190425
  6. TORASEMID [Concomitant]
     Active Substance: TORSEMIDE
     Indication: ATRIAL FIBRILLATION
     Dosage: 10 MG, UNK
     Route: 048
     Dates: start: 20180101
  7. DIMETINDENE [Concomitant]
     Active Substance: DIMETHINDENE
     Indication: PROPHYLAXIS
     Dosage: 4 MG, UNK
     Route: 042
     Dates: start: 20190225, end: 20190225
  8. DIMETINDENE [Concomitant]
     Active Substance: DIMETHINDENE
     Dosage: UNK
     Route: 042
     Dates: start: 20190424, end: 20190424
  9. LONQUEX [Concomitant]
     Active Substance: LIPEGFILGRASTIM
     Dosage: UNK
     Route: 065
     Dates: start: 20190308, end: 20190308
  10. TAVOR [Concomitant]
     Indication: PRODUCT USED FOR UNKNOWN INDICATION
     Dosage: 1 MG, UNK
     Route: 048
     Dates: start: 20190211
  11. RIXATHON [Suspect]
     Active Substance: RITUXIMAB
     Dosage: 723.75 MG, UNK
     Route: 041
     Dates: start: 20190424, end: 20190424
  12. CANDESARTAN. [Concomitant]
     Active Substance: CANDESARTAN
     Indication: HYPERTENSION
     Dosage: 16 MG, UNK
     Route: 048
     Dates: start: 20180101
  13. MESNA. [Concomitant]
     Active Substance: MESNA
     Indication: PROPHYLAXIS
     Dosage: UNK
     Route: 042
     Dates: start: 20190212, end: 20190212
  14. MIRTAZAPIN [Concomitant]
     Active Substance: MIRTAZAPINE
     Indication: GENERAL PHYSICAL HEALTH DETERIORATION
  15. PANTOZOL [Concomitant]
     Active Substance: PANTOPRAZOLE SODIUM
     Indication: GENERAL PHYSICAL HEALTH DETERIORATION
  16. LONQUEX [Concomitant]
     Active Substance: LIPEGFILGRASTIM
     Dosage: UNK
     Route: 042
     Dates: start: 20190424, end: 20190424
  17. CYCLOPHOSPHAMIDE. [Suspect]
     Active Substance: CYCLOPHOSPHAMIDE
     Indication: DIFFUSE LARGE B-CELL LYMPHOMA
     Dosage: 828 MG, (START TIME: 15:00 TO STOP TIME: 16:00)
     Route: 041
     Dates: start: 20190212, end: 20190212
  18. CYCLOPHOSPHAMIDE. [Suspect]
     Active Substance: CYCLOPHOSPHAMIDE
     Dosage: 1158 MG, UNK
     Route: 041
     Dates: start: 20190425, end: 20190425
  19. DOXORUBICIN [Suspect]
     Active Substance: DOXORUBICIN
     Dosage: 66.15 MG, UNK
     Route: 041
     Dates: start: 20190314, end: 20190314
  20. DEXAMETASON [Concomitant]
     Active Substance: DEXAMETHASONE
     Dosage: UNK
     Route: 048
     Dates: start: 20190313, end: 20190313
  21. DEXAMETASON [Concomitant]
     Active Substance: DEXAMETHASONE
     Dosage: UNK
     Route: 048
     Dates: start: 20190410, end: 20190410
  22. MESNA. [Concomitant]
     Active Substance: MESNA
     Dosage: UNK
     Route: 042
     Dates: start: 20190410, end: 20190410
  23. MESNA. [Concomitant]
     Active Substance: MESNA
     Dosage: UNK
     Route: 042
     Dates: start: 20190425, end: 20190425
  24. RANITIDIN [Concomitant]
     Active Substance: RANITIDINE HYDROCHLORIDE
     Dosage: UNK
     Route: 042
     Dates: start: 20190408, end: 20190410
  25. DIMETINDENE [Concomitant]
     Active Substance: DIMETHINDENE
     Dosage: UNK
     Route: 042
     Dates: start: 20190622, end: 20190622
  26. LORAZEPAM. [Concomitant]
     Active Substance: LORAZEPAM
     Indication: PROPHYLAXIS
     Dosage: 1 MG, UNK
     Route: 048
     Dates: start: 20190211
  27. RIXATHON [Suspect]
     Active Substance: RITUXIMAB
     Dosage: 965 MG, UNK
     Route: 041
     Dates: start: 20190622, end: 20190622
  28. PREDNISONE. [Suspect]
     Active Substance: PREDNISONE
     Indication: DIFFUSE LARGE B-CELL LYMPHOMA
     Dosage: 500 MG, UNK
     Route: 048
     Dates: start: 20190212, end: 20190216
  29. PREDNISONE. [Suspect]
     Active Substance: PREDNISONE
     Dosage: 500 MG, UNK
     Route: 048
     Dates: start: 20190226, end: 20190302
  30. CYCLOPHOSPHAMIDE. [Suspect]
     Active Substance: CYCLOPHOSPHAMIDE
     Dosage: 1470 MG, UNK
     Route: 041
     Dates: start: 20190226, end: 20190226
  31. VINCRISTINE [Suspect]
     Active Substance: VINCRISTINE
     Dosage: 1 MG, UNK
     Route: 041
     Dates: start: 20190226, end: 20190226
  32. DOXORUBICIN [Suspect]
     Active Substance: DOXORUBICIN
     Indication: DIFFUSE LARGE B-CELL LYMPHOMA
     Dosage: 51.75 MG, UNK
     Route: 041
     Dates: start: 20190212, end: 20190212
  33. ASPIRIN. [Concomitant]
     Active Substance: ASPIRIN
     Indication: CEREBROVASCULAR ACCIDENT
     Dosage: 100 MG, UNK
     Route: 048
     Dates: start: 20180101
  34. GRANISETRON [Concomitant]
     Active Substance: GRANISETRON
     Indication: PROPHYLAXIS
     Dosage: UNK
     Route: 048
     Dates: start: 20190212, end: 20190212
  35. NOVALGIN [Concomitant]
     Indication: GENERAL PHYSICAL HEALTH DETERIORATION
  36. PARACETAMOL [Concomitant]
     Active Substance: ACETAMINOPHEN
     Dosage: UNK
     Route: 042
     Dates: start: 20190408, end: 20190408
  37. ZOMETA [Concomitant]
     Active Substance: ZOLEDRONIC ACID
     Dosage: UNK
     Route: 042
     Dates: start: 20190211
  38. LONQUEX [Concomitant]
     Active Substance: LIPEGFILGRASTIM
     Indication: PROPHYLAXIS
     Dosage: 6 MG, UNK
     Route: 058
     Dates: start: 20190212, end: 20190212
  39. RIXATHON [Suspect]
     Active Substance: RITUXIMAB
     Dosage: 723.75 MG, UNK
     Route: 041
     Dates: start: 20190408, end: 20190408
  40. PREDNISONE. [Suspect]
     Active Substance: PREDNISONE
     Dosage: 500 MG, UNK
     Route: 048
     Dates: start: 20190410, end: 20190414
  41. CYCLOPHOSPHAMIDE. [Suspect]
     Active Substance: CYCLOPHOSPHAMIDE
     Dosage: 945 MG, UNK
     Route: 041
     Dates: start: 20190314, end: 20190314
  42. CYCLOPHOSPHAMIDE. [Suspect]
     Active Substance: CYCLOPHOSPHAMIDE
     Dosage: 1158 MG, UNK
     Route: 041
     Dates: start: 20190410, end: 20190410
  43. DEXAMETASON [Concomitant]
     Active Substance: DEXAMETHASONE
     Dosage: UNK
     Route: 048
     Dates: start: 20190425, end: 20190425
  44. GRANISETRON [Concomitant]
     Active Substance: GRANISETRON
     Indication: GENERAL PHYSICAL HEALTH DETERIORATION
     Dosage: 2 MG, UNK
     Route: 048
     Dates: start: 20190226, end: 20190226
  45. NOVALGIN [Concomitant]
     Indication: PROPHYLAXIS
     Dosage: 500 MG, UNK
     Route: 048
     Dates: start: 20180101
  46. PALLADON [Concomitant]
     Active Substance: HYDROMORPHONE
     Indication: GENERAL PHYSICAL HEALTH DETERIORATION
     Dosage: UNK
     Route: 048
     Dates: start: 20190510
  47. PALLADON [Concomitant]
     Active Substance: HYDROMORPHONE
     Indication: ACETABULUM FRACTURE
  48. PREGABALIN. [Concomitant]
     Active Substance: PREGABALIN
     Indication: CEREBROVASCULAR ACCIDENT
     Dosage: 50 MG, UNK
     Route: 048
     Dates: start: 20180101
  49. RANITIDIN [Concomitant]
     Active Substance: RANITIDINE HYDROCHLORIDE
     Indication: GENERAL PHYSICAL HEALTH DETERIORATION
     Dosage: 50 MG, UNK
     Route: 042
     Dates: start: 20190225, end: 20190226
  50. RANITIDIN [Concomitant]
     Active Substance: RANITIDINE HYDROCHLORIDE
     Dosage: 50 MG, UNK
     Route: 042
     Dates: start: 20190313, end: 20190314
  51. PARACETAMOL [Concomitant]
     Active Substance: ACETAMINOPHEN
     Indication: PROPHYLAXIS
     Dosage: 1000 MG, UNK
     Route: 048
     Dates: start: 20190313, end: 20190313
  52. ZOMETA [Concomitant]
     Active Substance: ZOLEDRONIC ACID
     Dosage: UNK
     Route: 042
     Dates: start: 20190426, end: 20190426
  53. CALCITONIN [Concomitant]
     Active Substance: CALCITONIN
     Indication: HYPERCALCAEMIA
     Dosage: UNK
     Route: 042
     Dates: start: 20190211
  54. LORAZEPAM. [Concomitant]
     Active Substance: LORAZEPAM
     Indication: GENERAL PHYSICAL HEALTH DETERIORATION
  55. DOXORUBICIN [Suspect]
     Active Substance: DOXORUBICIN
     Dosage: 78.4 MG, UNK
     Route: 041
     Dates: start: 20190226, end: 20190226
  56. ATORVASTATIN [Concomitant]
     Active Substance: ATORVASTATIN
     Indication: ATRIAL FIBRILLATION
     Dosage: 40 MG, UNK
     Route: 048
     Dates: start: 20180101
  57. DEXAMETASON [Concomitant]
     Active Substance: DEXAMETHASONE
     Dosage: 8 MG, UNK
     Route: 048
     Dates: start: 20190226, end: 20190226
  58. GRANISETRON [Concomitant]
     Active Substance: GRANISETRON
     Dosage: 2 MG, UNK
     Route: 048
     Dates: start: 20190313, end: 20190313
  59. L-THYROXIN [Concomitant]
     Active Substance: LEVOTHYROXINE SODIUM
     Indication: GOITRE
     Dosage: 50 OT, UNK
     Route: 048
     Dates: start: 20180101
  60. RANITIDIN [Concomitant]
     Active Substance: RANITIDINE HYDROCHLORIDE
     Indication: PROPHYLAXIS
     Dosage: UNK
     Route: 042
     Dates: start: 20190212, end: 20190212
  61. RANITIDIN [Concomitant]
     Active Substance: RANITIDINE HYDROCHLORIDE
     Dosage: UNK
     Route: 042
     Dates: start: 20190622, end: 20190622
  62. PARACETAMOL [Concomitant]
     Active Substance: ACETAMINOPHEN
     Dosage: UNK
     Route: 048
     Dates: start: 20190622, end: 20190622
  63. ZOMETA [Concomitant]
     Active Substance: ZOLEDRONIC ACID
     Dosage: UNK
     Route: 042
     Dates: start: 20190327, end: 20190327
  64. LONQUEX [Concomitant]
     Active Substance: LIPEGFILGRASTIM
     Dosage: UNK
     Route: 065
     Dates: start: 20190408, end: 20190408
  65. RIXATHON [Suspect]
     Active Substance: RITUXIMAB
     Dosage: 708.75 MG, UNK
     Route: 041
     Dates: start: 20190313, end: 20190313
  66. PREDNISONE. [Suspect]
     Active Substance: PREDNISONE
     Dosage: 500 MG, UNK
     Route: 048
     Dates: start: 20190314, end: 20190318
  67. VINCRISTINE [Suspect]
     Active Substance: VINCRISTINE
     Indication: DIFFUSE LARGE B-CELL LYMPHOMA
     Dosage: 1 MG, (START TIME: 04:30 TO STOP TIME: 04:35)
     Route: 041
     Dates: start: 20190212, end: 20190212
  68. ALLOPURINOL. [Concomitant]
     Active Substance: ALLOPURINOL
     Indication: ARRHYTHMIA
     Dosage: 150 MG, UNK
     Route: 048
     Dates: start: 20180101
  69. DEXAMETASON [Concomitant]
     Active Substance: DEXAMETHASONE
     Indication: PROPHYLAXIS
     Dosage: UNK
     Route: 048
     Dates: start: 20190211, end: 20190211
  70. DEXAMETASON [Concomitant]
     Active Substance: DEXAMETHASONE
     Indication: GENERAL PHYSICAL HEALTH DETERIORATION
     Dosage: 8 MG, UNK
     Route: 048
     Dates: start: 20190226, end: 20190226
  71. FRESUBIN [Concomitant]
     Active Substance: AMINO ACIDS\DEXTROSE\ELECTROLYTES NOS\SOYBEAN OIL\VITAMINS
     Indication: GENERAL PHYSICAL HEALTH DETERIORATION
     Dosage: DRINK
     Route: 048
     Dates: start: 20180101
  72. RANITIDIN [Concomitant]
     Active Substance: RANITIDINE HYDROCHLORIDE
     Dosage: UNK
     Route: 065
  73. DIMETINDENE [Concomitant]
     Active Substance: DIMETHINDENE
     Dosage: 4 MG, UNK
     Route: 042
     Dates: start: 20190313, end: 20190313
  74. DIMETINDENE [Concomitant]
     Active Substance: DIMETHINDENE
     Dosage: UNK
     Route: 042
     Dates: start: 20190408, end: 20190408
  75. ZOMETA [Concomitant]
     Active Substance: ZOLEDRONIC ACID
     Indication: HYPERCALCAEMIA
     Dosage: 4 MG, UNK
     Route: 042
     Dates: start: 20190205
  76. RIXATHON [Suspect]
     Active Substance: RITUXIMAB
     Dosage: 735 MG, UNK
     Route: 041
     Dates: start: 20190225, end: 20190225
  77. PREDNISONE. [Suspect]
     Active Substance: PREDNISONE
     Dosage: 500 MG, UNK
     Route: 048
     Dates: start: 20190425, end: 20190429
  78. VINCRISTINE [Suspect]
     Active Substance: VINCRISTINE
     Dosage: 1 MG, UNK
     Route: 041
     Dates: start: 20190314, end: 20190314
  79. VINCRISTINE [Suspect]
     Active Substance: VINCRISTINE
     Dosage: 1 MG, UNK
     Route: 041
     Dates: start: 20190410, end: 20190410
  80. VINCRISTINE [Suspect]
     Active Substance: VINCRISTINE
     Dosage: 1 MG, UNK
     Route: 041
     Dates: start: 20190425, end: 20190425
  81. DOXORUBICIN [Suspect]
     Active Substance: DOXORUBICIN
     Dosage: 77.20 MG, UNK
     Route: 041
     Dates: start: 20190410, end: 20190410
  82. COTRIM FORTE [Concomitant]
     Active Substance: SULFAMETHOXAZOLE\TRIMETHOPRIM
     Indication: GENERAL PHYSICAL HEALTH DETERIORATION
     Dosage: 960 MG, UNK
     Route: 048
     Dates: start: 20180101
  83. GRANISETRON [Concomitant]
     Active Substance: GRANISETRON
     Dosage: UNK
     Route: 048
     Dates: start: 20190425, end: 20190425
  84. MESNA. [Concomitant]
     Active Substance: MESNA
     Indication: GENERAL PHYSICAL HEALTH DETERIORATION
     Dosage: 800 MG, UNK
     Route: 042
     Dates: start: 20190226, end: 20190226
  85. MESNA. [Concomitant]
     Active Substance: MESNA
     Dosage: 800 MG, UNK
     Route: 042
     Dates: start: 20190313, end: 20190313
  86. PALLADON [Concomitant]
     Active Substance: HYDROMORPHONE
     Indication: PROPHYLAXIS
     Dosage: UNK
     Route: 048
     Dates: start: 20180101
  87. LONQUEX [Concomitant]
     Active Substance: LIPEGFILGRASTIM
     Indication: GENERAL PHYSICAL HEALTH DETERIORATION
     Dosage: UNK
     Route: 065
     Dates: start: 20190225, end: 20190225

REACTIONS (26)
  - Chills [Recovered/Resolved]
  - Pneumonia [Fatal]
  - Metastases to bone [Unknown]
  - Blood lactate dehydrogenase increased [Unknown]
  - Diffuse large B-cell lymphoma [Fatal]
  - Staphylococcal infection [Not Recovered/Not Resolved]
  - Metastases to soft tissue [Unknown]
  - Acetabulum fracture [Not Recovered/Not Resolved]
  - Thrombosis [Not Recovered/Not Resolved]
  - Cytopenia [Not Recovered/Not Resolved]
  - Oedema peripheral [Not Recovered/Not Resolved]
  - Malignant neoplasm progression [Fatal]
  - Pancytopenia [Recovered/Resolved]
  - Thrombocytopenia [Not Recovered/Not Resolved]
  - Infusion related reaction [Recovered/Resolved]
  - Fungal infection [Recovered/Resolved]
  - Infection [Not Recovered/Not Resolved]
  - Metastases to spine [Unknown]
  - Metastases to pelvis [Unknown]
  - Scapula fracture [Not Recovered/Not Resolved]
  - C-reactive protein increased [Not Recovered/Not Resolved]
  - Anaemia [Not Recovered/Not Resolved]
  - Thoracic vertebral fracture [Not Recovered/Not Resolved]
  - Pyrexia [Recovered/Resolved]
  - Muscular weakness [Not Recovered/Not Resolved]
  - Lymphadenopathy [Unknown]

NARRATIVE: CASE EVENT DATE: 20190211
